FAERS Safety Report 25742720 (Version 2)
Quarter: 2025Q4

REPORT INFORMATION
  Report Type: Report from Study
  Country: CA (occurrence: CA)
  Receive Date: 20250830
  Receipt Date: 20251019
  Transmission Date: 20260118
  Serious: Yes (Hospitalization)
  Sender: CELLTRION
  Company Number: CA-CELLTRION INC.-2025CA025409

PATIENT

DRUGS (2)
  1. INFLIXIMAB-DYYB [Suspect]
     Active Substance: INFLIXIMAB-DYYB
     Indication: Colitis ulcerative
     Dosage: REMDANTRY - MAINTENANCE - 600 MG - IV (INTRAVENOUS) EVERY 4 WEEKS
     Route: 042
     Dates: start: 20250619
  2. INFLIXIMAB-DYYB [Suspect]
     Active Substance: INFLIXIMAB-DYYB
     Dosage: REMDANTRY - MAINTENANCE - 600 MG - IV (INTRAVENOUS) EVERY 4 WEEKS
     Route: 042
     Dates: start: 20250619

REACTIONS (9)
  - Condition aggravated [Unknown]
  - Pyrexia [Unknown]
  - Oropharyngeal pain [Unknown]
  - Headache [Not Recovered/Not Resolved]
  - Intentional dose omission [Unknown]
  - Intentional product use issue [Unknown]
  - Overdose [Unknown]
  - Treatment delayed [Unknown]
  - Therapy interrupted [Unknown]

NARRATIVE: CASE EVENT DATE: 20250905
